FAERS Safety Report 6403442-8 (Version None)
Quarter: 2009Q4

REPORT INFORMATION
  Report Type: 
  Country: None (occurrence: None)
  Receive Date: 20091016
  Receipt Date: 20091007
  Transmission Date: 20100525
  Serious: Yes (Other)
  Sender: FDA-Public Use
  Company Number: JP-ASTRAZENECA-2009SE19294

PATIENT
  Age: 64 Year
  Sex: Male

DRUGS (4)
  1. DIPRIVAN [Suspect]
     Indication: INDUCTION AND MAINTENANCE OF ANAESTHESIA
     Dosage: 1.0-3.0 MCG/ML
     Route: 042
  2. BUPRENORPHINE HYDROCHLORIDE [Interacting]
     Dosage: DOSE UNKNOWN
     Route: 054
  3. ROCURONIUM BROMIDE [Concomitant]
     Indication: INDUCTION OF ANAESTHESIA
     Dosage: DOSE UNKNOWN
     Route: 042
  4. LOCAL ANESTHETICS [Concomitant]
     Indication: EPIDURAL ANAESTHESIA
     Dosage: DOSE UNKNOWN
     Route: 008

REACTIONS (2)
  - DELAYED RECOVERY FROM ANAESTHESIA [None]
  - POTENTIATING DRUG INTERACTION [None]
